FAERS Safety Report 8049763-7 (Version None)
Quarter: 2012Q1

REPORT INFORMATION
  Report Type: 
  Country: None (occurrence: None)
  Receive Date: 20120117
  Receipt Date: 20120104
  Transmission Date: 20120608
  Serious: Yes (Other)
  Sender: FDA-Public Use
  Company Number: US-BAYER-2012-002413

PATIENT
  Age: 30 Year

DRUGS (6)
  1. AMPHETAMINE AND DEXTROAMPHETAMINE SALTS [Concomitant]
     Dosage: 20 MG, BID
     Route: 048
  2. YASMIN [Suspect]
  3. VYVANSE [Concomitant]
     Dosage: 40 MG, QD
     Route: 048
  4. CLINDAMYCIN [Concomitant]
     Dosage: 150 MG, BID
     Route: 048
  5. YAZ [Suspect]
  6. DROSPIRENONE AND ETHINYL ESTRADIOL [Suspect]

REACTIONS (1)
  - CHOLECYSTECTOMY [None]
